FAERS Safety Report 8505119-1 (Version None)
Quarter: 2012Q3

REPORT INFORMATION
  Report Type: 
  Country: None (occurrence: None)
  Receive Date: 20120712
  Receipt Date: 20120710
  Transmission Date: 20120928
  Serious: Yes (Hospitalization)
  Sender: FDA-Public Use
  Company Number: PHHY2012KR032889

PATIENT
  Sex: Female
  Weight: 60 kg

DRUGS (3)
  1. AFINITOR [Suspect]
     Dosage: 10 MG, UNK
     Route: 048
     Dates: start: 20120209, end: 20120215
  2. AFINITOR [Suspect]
     Indication: RENAL CELL CARCINOMA
     Dosage: 10 MG, DAILY
     Route: 048
     Dates: start: 20110822, end: 20120111
  3. AFINITOR [Suspect]
     Dosage: 5 MG, UNK
     Route: 048
     Dates: start: 20120112, end: 20120118

REACTIONS (4)
  - VAGINAL HAEMORRHAGE [None]
  - HAEMOGLOBIN DECREASED [None]
  - MENORRHAGIA [None]
  - ADENOMYOSIS [None]
